FAERS Safety Report 5502899-4 (Version None)
Quarter: 2007Q4

REPORT INFORMATION
  Report Type: 
  Country: None (occurrence: None)
  Receive Date: 20071029
  Receipt Date: 20071029
  Transmission Date: 20080405
  Serious: No
  Sender: FDA-Public Use
  Company Number: None

PATIENT
  Sex: Male
  Weight: 65.7716 kg

DRUGS (1)
  1. FIBER THERAPY       EQUATE [Suspect]
     Indication: CONSTIPATION
     Dosage: 8OZ UP TO 3X A DAY  DAILY  BUCCAL
     Route: 002

REACTIONS (1)
  - PHARMACEUTICAL PRODUCT COMPLAINT [None]
